FAERS Safety Report 10336993 (Version 1)
Quarter: 2014Q3

REPORT INFORMATION
  Report Type: Spontaneous
  Country: FR (occurrence: FR)
  Receive Date: 20140723
  Receipt Date: 20140723
  Transmission Date: 20150326
  Serious: Yes (Death, Other)
  Sender: FDA-Public Use
  Company Number: FR-PFIZER INC-2014200822

PATIENT
  Age: 59 Year
  Sex: Female

DRUGS (3)
  1. IDARUBICIN HCL [Suspect]
     Active Substance: IDARUBICIN HYDROCHLORIDE
     Indication: ACUTE MYELOID LEUKAEMIA
     Dosage: 12 MG/M2, DAILY FROM DAY 1 TO DAY 3
     Route: 042
     Dates: start: 20130208
  2. ARACYTINE [Suspect]
     Active Substance: CYTARABINE
     Indication: ACUTE MYELOID LEUKAEMIA
     Dosage: 3 G/M2 TWICE DAILY ON DAYS 1-3-5-7
     Route: 042
     Dates: start: 20130208, end: 20130214
  3. HYDREA [Suspect]
     Active Substance: HYDROXYUREA
     Indication: ACUTE MYELOID LEUKAEMIA
     Dosage: UNK
     Route: 048
     Dates: start: 20130208

REACTIONS (4)
  - Pyrexia [Unknown]
  - Disease progression [Fatal]
  - Acute myeloid leukaemia [Fatal]
  - Skin toxicity [Recovered/Resolved]

NARRATIVE: CASE EVENT DATE: 201302
